FAERS Safety Report 9176734 (Version 1)
Quarter: 2013Q1

REPORT INFORMATION
  Report Type: Spontaneous
  Country: AU (occurrence: None)
  Receive Date: 20130319
  Receipt Date: 20130319
  Transmission Date: 20140127
  Serious: Yes (Hospitalization, Other)
  Sender: FDA-Public Use
  Company Number: USA/AUS/13/0028530

PATIENT
  Age: 45 Year
  Sex: Female

DRUGS (8)
  1. QUETIAPINE [Suspect]
     Indication: DEPRESSION
  2. SODIUM VALPROATE (VALPROATE SODIUM) [Suspect]
     Indication: PRODUCT USED FOR UNKNOWN INDICATION
  3. VENLAFAXINE (VENLAFAXINE) [Concomitant]
  4. PLAIN LITHIUM (LITHIUM) [Concomitant]
  5. DIAZEPAM (DIAZEPAM) [Concomitant]
  6. THYROXINE (LEVOTHYROXINE SODIUM) [Concomitant]
  7. MORPHINE [Concomitant]
  8. ROSUVASTATIN (ROSUVASTATIN) [Concomitant]

REACTIONS (2)
  - Oedema peripheral [None]
  - Drug interaction [None]
